FAERS Safety Report 4622016-2 (Version None)
Quarter: 2005Q1

REPORT INFORMATION
  Report Type: 
  Country: None (occurrence: None)
  Receive Date: 20050328
  Receipt Date: 20050311
  Transmission Date: 20050727
  Serious: Yes (Hospitalization)
  Sender: FDA-Public Use
  Company Number: 2005BI005702

PATIENT
  Age: 29 Year
  Sex: Female
  Weight: 81.1939 kg

DRUGS (3)
  1. AVONEX [Suspect]
     Indication: MULTIPLE SCLEROSIS
     Dosage: 30 UG; QW; IM
     Route: 030
     Dates: start: 19980501
  2. AVONEX [Suspect]
     Indication: MULTIPLE SCLEROSIS
     Dosage: 30 UG; QW; IM
     Route: 030
  3. VITAMINS [Concomitant]

REACTIONS (8)
  - DYSPEPSIA [None]
  - HAEMATOCRIT DECREASED [None]
  - HIATUS HERNIA [None]
  - MENSTRUATION IRREGULAR [None]
  - POST PROCEDURAL COMPLICATION [None]
  - PROCEDURAL SITE REACTION [None]
  - UTERINE PROLAPSE [None]
  - VAGINAL HAEMORRHAGE [None]
